FAERS Safety Report 4361134-3 (Version None)
Quarter: 2004Q2

REPORT INFORMATION
  Report Type: 
  Country: None (occurrence: None)
  Receive Date: 20040511
  Receipt Date: 20030918
  Transmission Date: 20050107
  Serious: Yes (Hospitalization)
  Sender: FDA-Public Use
  Company Number: US_030997732

PATIENT
  Age: 75 Year
  Sex: Male
  Weight: 122 kg

DRUGS (16)
  1. HUMALOG [Suspect]
     Indication: DIABETES MELLITUS
     Dosage: 75 U/DAY
  2. PROZAC [Suspect]
     Indication: DIABETES MELLITUS
  3. POTASSIUM CHLORIDE [Concomitant]
  4. FUROSEMIDE [Concomitant]
  5. TEMAZEPAM [Concomitant]
  6. ASPIRIN [Concomitant]
  7. RANITIDINE [Concomitant]
  8. ZESTRIL [Concomitant]
  9. ZOCOR [Concomitant]
  10. DOXAZOSIN [Concomitant]
  11. NITROGLYCERIN [Concomitant]
  12. COREG [Concomitant]
  13. NAPROSYN [Concomitant]
  14. AVANDIA [Concomitant]
  15. PLAVIX [Concomitant]
  16. PROCRIT (ERYTHROPOIETIN) [Concomitant]

REACTIONS (3)
  - ANAEMIA [None]
  - ASTHENIA [None]
  - CARDIAC FAILURE CONGESTIVE [None]
